FAERS Safety Report 15584894 (Version 1)
Quarter: 2018Q4

REPORT INFORMATION
  Report Type: Spontaneous
  Country: US (occurrence: US)
  Receive Date: 20181102
  Receipt Date: 20181102
  Transmission Date: 20190205
  Serious: Yes (Hospitalization, Other)
  Sender: FDA-Public Use
  Company Number: US-TEVA-2018-US-968920

PATIENT
  Age: 82 Year
  Sex: Male
  Weight: 85.7 kg

DRUGS (13)
  1. WARFARIN SODIUM. [Suspect]
     Active Substance: WARFARIN SODIUM
     Route: 048
     Dates: start: 20180913, end: 20180914
  2. AMLODIPINE [Concomitant]
     Active Substance: AMLODIPINE BESYLATE
     Route: 065
  3. WARFARIN SODIUM. [Suspect]
     Active Substance: WARFARIN SODIUM
     Indication: TRANSIENT ISCHAEMIC ATTACK
     Route: 048
     Dates: start: 2017, end: 201807
  4. WARFARIN SODIUM. [Suspect]
     Active Substance: WARFARIN SODIUM
     Route: 048
     Dates: start: 20180916
  5. WARFARIN SODIUM. [Suspect]
     Active Substance: WARFARIN SODIUM
     Route: 048
     Dates: start: 20180807, end: 20180911
  6. FUROSEMIDE. [Concomitant]
     Active Substance: FUROSEMIDE
     Route: 065
  7. LISINOPRIL. [Concomitant]
     Active Substance: LISINOPRIL
     Route: 065
  8. TEVA WARFARIN [Suspect]
     Active Substance: WARFARIN
     Route: 065
     Dates: start: 201807, end: 201808
  9. WARFARIN SODIUM. [Suspect]
     Active Substance: WARFARIN SODIUM
     Dosage: FORM STRENGTH: 7.5, UNIT NOT PROVIDED
     Route: 048
     Dates: start: 20180912, end: 20180912
  10. PEPCID [Concomitant]
     Active Substance: FAMOTIDINE
     Route: 065
  11. TEVA WARFARIN [Suspect]
     Active Substance: WARFARIN
     Route: 065
  12. ALLOPURINOL. [Concomitant]
     Active Substance: ALLOPURINOL
     Route: 065
  13. WARFARIN SODIUM. [Suspect]
     Active Substance: WARFARIN SODIUM
     Route: 048
     Dates: start: 20180915, end: 20180915

REACTIONS (10)
  - Muscle injury [Recovered/Resolved]
  - Lymphocele [Unknown]
  - International normalised ratio decreased [Unknown]
  - Rib fracture [Recovered/Resolved]
  - Contusion [Unknown]
  - Intentional product use issue [Unknown]
  - Aortic aneurysm [Recovered/Resolved]
  - Posture abnormal [Unknown]
  - Asthenia [Not Recovered/Not Resolved]
  - Fall [Not Recovered/Not Resolved]

NARRATIVE: CASE EVENT DATE: 2017
